FAERS Safety Report 10097205 (Version 1)
Quarter: 2014Q2

REPORT INFORMATION
  Report Type: Spontaneous
  Country: US (occurrence: US)
  Receive Date: 20140422
  Receipt Date: 20140422
  Transmission Date: 20141212
  Serious: Yes (Other)
  Sender: FDA-Public Use
  Company Number: CHPA2014US005284

PATIENT
  Age: 74 Year
  Sex: Female

DRUGS (2)
  1. VOLTAREN GEL [Suspect]
     Indication: MENISCUS INJURY
     Dosage: 2 HALF SIZE EACH TIME, QID
     Route: 061
     Dates: start: 2013
  2. VOLTAREN GEL [Suspect]
     Indication: OFF LABEL USE
     Dosage: 2 HALF DOLLAR SIZE AMOUNTS, QID
     Route: 061
     Dates: start: 201403

REACTIONS (3)
  - Meniscus injury [Unknown]
  - Drug ineffective for unapproved indication [Unknown]
  - Wrong technique in drug usage process [Unknown]
